FAERS Safety Report 8832153 (Version 1)
Quarter: 2012Q4

REPORT INFORMATION
  Report Type: 
  Country: US (occurrence: US)
  Receive Date: 20121009
  Receipt Date: 20121009
  Transmission Date: 20130627
  Serious: No
  Sender: FDA-Public Use
  Company Number: US-BAYER-2012-102063

PATIENT
  Age: 41 Year
  Sex: Male
  Weight: 72.56 kg

DRUGS (2)
  1. ALEVE [Suspect]
     Indication: LAXATIVE SUPPORTIVE CARE
     Dosage: 1 DF, QD
     Route: 048
     Dates: start: 20120924, end: 20120925
  2. MULTIPLE ALLERGY MEDICATIONS [Concomitant]

REACTIONS (2)
  - Abdominal discomfort [Recovered/Resolved]
  - Abdominal discomfort [None]
